FAERS Safety Report 13513489 (Version 1)
Quarter: 2017Q2

REPORT INFORMATION
  Report Type: Spontaneous
  Country: US (occurrence: US)
  Receive Date: 20170504
  Receipt Date: 20170504
  Transmission Date: 20170830
  Serious: No
  Sender: FDA-Public Use
  Company Number: US-ARBOR PHARMACEUTICALS, LLC-US-2016ARB000312

PATIENT

DRUGS (2)
  1. ERY-TAB [Suspect]
     Active Substance: ERYTHROMYCIN
     Indication: GINGIVITIS
     Dosage: 250 MG, TID
     Route: 048
     Dates: start: 20160418
  2. TOPROL XL [Concomitant]
     Active Substance: METOPROLOL SUCCINATE
     Indication: HYPERTENSION
     Dosage: UNK

REACTIONS (2)
  - Extrasystoles [Unknown]
  - Insomnia [Unknown]

NARRATIVE: CASE EVENT DATE: 20160418
